FAERS Safety Report 6596354-0 (Version None)
Quarter: 2010Q1

REPORT INFORMATION
  Report Type: 
  Country: None (occurrence: None)
  Receive Date: 20100223
  Receipt Date: 20100215
  Transmission Date: 20100710
  Serious: Yes (Hospitalization)
  Sender: FDA-Public Use
  Company Number: LU-ELI_LILLY_AND_COMPANY-LU201001000911

PATIENT
  Sex: Male

DRUGS (8)
  1. BYETTA [Suspect]
     Indication: TYPE 2 DIABETES MELLITUS
     Dosage: 5 UG, DAILY (1/D)
     Route: 058
     Dates: start: 20091208, end: 20100106
  2. PROGRAFT [Concomitant]
     Dosage: 1 MG AD 1.5MG  DAILY (1/D)
     Route: 048
     Dates: start: 20060101
  3. CELLCEPT [Concomitant]
     Dosage: 1 D/F, DAILY (1/D)
     Route: 048
     Dates: start: 20060101
  4. MOXON [Concomitant]
     Dosage: 0.4 D/F, UNKNOWN
     Route: 048
     Dates: start: 20060101
  5. LASIX [Concomitant]
     Dosage: 1 D/F, UNKNOWN
     Route: 048
     Dates: start: 20080101
  6. CONCOR [Concomitant]
     Dosage: 5 MG, UNKNOWN
     Route: 048
     Dates: start: 20060101
  7. COVERSYL [Concomitant]
     Dosage: 5 MG, UNKNOWN
     Route: 048
     Dates: start: 20060101
  8. LIPITOR [Concomitant]
     Dosage: UNK, UNKNOWN
     Route: 048
     Dates: start: 20060101

REACTIONS (2)
  - DRUG INTERACTION [None]
  - RENAL FAILURE [None]
